FAERS Safety Report 10018749 (Version 1)
Quarter: 2014Q1

REPORT INFORMATION
  Report Type: Spontaneous
  Country: US (occurrence: None)
  Receive Date: 20140314
  Receipt Date: 20140314
  Transmission Date: 20141002
  Serious: Yes (Hospitalization, Disabling)
  Sender: FDA-Public Use
  Company Number: None

PATIENT
  Sex: 0

DRUGS (1)
  1. CYPIONATE [Suspect]
     Indication: BLOOD TESTOSTERONE DECREASED

REACTIONS (4)
  - Sinus congestion [None]
  - Dizziness [None]
  - Arterial occlusive disease [None]
  - Impaired driving ability [None]
